FAERS Safety Report 11215820 (Version 3)
Quarter: 2015Q3

REPORT INFORMATION
  Report Type: Spontaneous
  Country: SE (occurrence: SE)
  Receive Date: 20150624
  Receipt Date: 20150804
  Transmission Date: 20151125
  Serious: Yes (Other)
  Sender: FDA-Public Use
  Company Number: SE-ASTELLAS-2015US021136

PATIENT
  Age: 65 Year
  Sex: Female

DRUGS (8)
  1. BAKLOFEN [Concomitant]
     Active Substance: BACLOFEN
     Indication: PRODUCT USED FOR UNKNOWN INDICATION
     Route: 065
  2. LYRICA [Concomitant]
     Active Substance: PREGABALIN
     Indication: PRODUCT USED FOR UNKNOWN INDICATION
     Route: 065
  3. BETMIGA [Suspect]
     Active Substance: MIRABEGRON
     Indication: URGE INCONTINENCE
     Route: 065
     Dates: start: 20141209, end: 20150330
  4. TROMBYL [Concomitant]
     Active Substance: ASPIRIN
     Indication: PRODUCT USED FOR UNKNOWN INDICATION
     Route: 065
  5. VESICARE [Concomitant]
     Active Substance: SOLIFENACIN SUCCINATE
     Indication: PRODUCT USED FOR UNKNOWN INDICATION
     Dosage: 1-2, ONCE DAILY
     Route: 065
  6. BETMIGA [Suspect]
     Active Substance: MIRABEGRON
     Indication: POLLAKIURIA
  7. FORLAX                             /00754501/ [Concomitant]
     Active Substance: POLYETHYLENE GLYCOL 4000
     Indication: PRODUCT USED FOR UNKNOWN INDICATION
     Route: 065
  8. FOLACIN                            /00024201/ [Concomitant]
     Active Substance: FOLIC ACID
     Indication: PRODUCT USED FOR UNKNOWN INDICATION
     Dosage: UNK UNK, UNKNOWN FREQ.
     Route: 065

REACTIONS (4)
  - Neurological decompensation [Recovered/Resolved]
  - Muscle spasms [Recovered/Resolved]
  - Bladder pain [Recovered/Resolved]
  - Drug ineffective [Unknown]

NARRATIVE: CASE EVENT DATE: 201501
